FAERS Safety Report 6014587-9 (Version None)
Quarter: 2008Q4

REPORT INFORMATION
  Report Type: 
  Country: None (occurrence: None)
  Receive Date: 20081219
  Receipt Date: 20080904
  Transmission Date: 20090506
  Serious: No
  Sender: FDA-Public Use
  Company Number: A0745930A

PATIENT
  Age: 80 Year
  Sex: Male

DRUGS (7)
  1. AVODART [Suspect]
     Indication: BENIGN PROSTATIC HYPERPLASIA
     Dosage: 1CAP PER DAY
     Route: 048
  2. WARFARIN SODIUM [Concomitant]
  3. METFORMIN HCL [Concomitant]
  4. UNKNOWN MEDICATION [Concomitant]
  5. EFFEXOR [Concomitant]
  6. LISINOPRIL [Concomitant]
  7. ASPIRIN [Concomitant]

REACTIONS (1)
  - DRUG INEFFECTIVE [None]
